FAERS Safety Report 19639448 (Version 4)
Quarter: 2021Q4

REPORT INFORMATION
  Report Type: Report from Study
  Country: US (occurrence: US)
  Receive Date: 20210730
  Receipt Date: 20211122
  Transmission Date: 20220303
  Serious: Yes (Other)
  Sender: FDA-Public Use
  Company Number: US-BAYER-2021-169780

PATIENT
  Age: 59 Year
  Sex: Female

DRUGS (5)
  1. STIVARGA [Suspect]
     Active Substance: REGORAFENIB
     Indication: Colorectal cancer
     Dosage: DAILY DOSE 80 MG FOR FIRST WEEK
     Route: 048
     Dates: start: 20210630, end: 20210706
  2. STIVARGA [Suspect]
     Active Substance: REGORAFENIB
     Indication: Colorectal cancer
     Dosage: DAILY DOSE 120 MG BY MOUTH
     Route: 048
     Dates: start: 20210707, end: 20210713
  3. STIVARGA [Suspect]
     Active Substance: REGORAFENIB
     Indication: Colorectal cancer
     Dosage: DAILY DOSE 160 MG FOR 21 DAYS ON + 7 DAYS OFF
     Route: 048
     Dates: start: 20210714, end: 202107
  4. STIVARGA [Suspect]
     Active Substance: REGORAFENIB
     Indication: Colorectal cancer
     Dosage: 120 MG DAILY FOR 21 DAYS ON/7 DAYS
     Route: 048
     Dates: start: 20210727, end: 20210816
  5. STIVARGA [Suspect]
     Active Substance: REGORAFENIB
     Indication: Colorectal cancer
     Dosage: 120 MG DAILY FOR 21 DAYS ON/ 7 DAYS OFF
     Route: 048
     Dates: start: 20210827

REACTIONS (9)
  - Neuropathy peripheral [Not Recovered/Not Resolved]
  - Nasal congestion [Not Recovered/Not Resolved]
  - Epistaxis [Not Recovered/Not Resolved]
  - Dry skin [Unknown]
  - Pain in extremity [Not Recovered/Not Resolved]
  - Fatigue [Not Recovered/Not Resolved]
  - Hypertension [Not Recovered/Not Resolved]
  - Skin exfoliation [Recovering/Resolving]
  - Off label use [Recovered/Resolved]

NARRATIVE: CASE EVENT DATE: 20210630
